FAERS Safety Report 20676552 (Version 1)
Quarter: 2022Q2

REPORT INFORMATION
  Report Type: Spontaneous
  Country: CN (occurrence: CN)
  Receive Date: 20220405
  Receipt Date: 20220405
  Transmission Date: 20220721
  Serious: Yes (Other)
  Sender: FDA-Public Use
  Company Number: CN-BAXTER-2022BAX007296

PATIENT
  Age: 37 Year
  Sex: Female
  Weight: 61.3 kg

DRUGS (10)
  1. CYCLOPHOSPHAMIDE [Suspect]
     Active Substance: CYCLOPHOSPHAMIDE
     Indication: Intraductal proliferative breast lesion
     Dosage: 1ST CHEMOTHERAPY; CYCLOPHOSPHAMIDE + SODIUM CHLORIDE
     Route: 041
  2. CYCLOPHOSPHAMIDE [Suspect]
     Active Substance: CYCLOPHOSPHAMIDE
     Indication: Invasive ductal breast carcinoma
     Dosage: 2ND CHEMOTHERAPY; CYCLOPHOSPHAMIDE FOR INJECTION 1.0G + 0.9% SODIUM CHLORIDE INJECTION 60ML
     Route: 041
     Dates: start: 20220324, end: 20220324
  3. CYCLOPHOSPHAMIDE [Suspect]
     Active Substance: CYCLOPHOSPHAMIDE
     Indication: HER2 positive breast cancer
  4. EPIRUBICIN HYDROCHLORIDE [Suspect]
     Active Substance: EPIRUBICIN HYDROCHLORIDE
     Indication: Intraductal proliferative breast lesion
     Dosage: 1ST CHEMOTHERAPY; EPIRUBICIN HYDROCHLORIDE + SODIUM CHLORIDE
     Route: 041
  5. EPIRUBICIN HYDROCHLORIDE [Suspect]
     Active Substance: EPIRUBICIN HYDROCHLORIDE
     Indication: Invasive ductal breast carcinoma
     Dosage: 2ND CHEMOTHERAPY; EPIRUBICIN HYDROCHLORIDE FOR INJECTION 150 MG + 0.9% SODIUM CHLORIDE INJECTION 500
     Route: 041
     Dates: start: 20220324, end: 20220324
  6. EPIRUBICIN HYDROCHLORIDE [Suspect]
     Active Substance: EPIRUBICIN HYDROCHLORIDE
     Indication: HER2 positive breast cancer
  7. SODIUM CHLORIDE [Suspect]
     Active Substance: SODIUM CHLORIDE
     Indication: Medication dilution
     Dosage: 1ST CHEMOTHERAPY; CYCLOPHOSPHAMIDE + 0.9% SODIUM CHLORIDE INJECTION 60ML
     Route: 041
  8. SODIUM CHLORIDE [Suspect]
     Active Substance: SODIUM CHLORIDE
     Dosage: 2ND CHEMOTHERAPY; CYCLOPHOSPHAMIDE FOR INJECTION 1.0G + 0.9% SODIUM CHLORIDE INJECTION 60ML
     Route: 041
     Dates: start: 20220324, end: 20220324
  9. SODIUM CHLORIDE [Suspect]
     Active Substance: SODIUM CHLORIDE
     Dosage: 1ST CHEMOTHERAPY; EPIRUBICIN HYDROCHLORIDE + 0.9% SODIUM CHLORIDE INJECTION
     Route: 041
  10. SODIUM CHLORIDE [Suspect]
     Active Substance: SODIUM CHLORIDE
     Dosage: 2ND CHEMOTHERAPY; EPIRUBICIN HYDROCHLORIDE FOR INJECTION 150 MG + 0.9% SODIUM CHLORIDE INJECTION 500
     Route: 041
     Dates: start: 20220324, end: 20220324

REACTIONS (4)
  - Gastrointestinal disorder [Recovered/Resolved]
  - Nausea [Recovered/Resolved]
  - Decreased appetite [Recovered/Resolved]
  - Vomiting [Recovered/Resolved]

NARRATIVE: CASE EVENT DATE: 20220324
